FAERS Safety Report 5162852-X (Version None)
Quarter: 2006Q4

REPORT INFORMATION
  Report Type: 
  Country: None (occurrence: None)
  Receive Date: 20061201
  Receipt Date: 20020531
  Transmission Date: 20070319
  Serious: Yes (Hospitalization)
  Sender: FDA-Public Use
  Company Number: FR-GLAXOSMITHKLINE-B0270058A

PATIENT
  Sex: Male
  Weight: 3.5 kg

DRUGS (11)
  1. RETROVIR [Suspect]
     Indication: ANTIVIRAL PROPHYLAXIS
     Route: 048
     Dates: start: 19990517
  2. RETROVIR [Suspect]
     Indication: HIV INFECTION
  3. EPIVIR [Suspect]
     Indication: HIV INFECTION
  4. RETROVIR [Suspect]
     Dates: start: 19990517, end: 19990517
  5. VIRAMUNE [Suspect]
     Indication: ANTIVIRAL PROPHYLAXIS
     Dosage: 2TAB PER DAY
     Route: 048
     Dates: start: 19990517, end: 19990517
  6. FAZOL [Concomitant]
     Route: 065
  7. PEVARYL [Concomitant]
     Route: 065
  8. MOTILIUM [Concomitant]
     Route: 048
  9. GAVISCON [Concomitant]
     Route: 048
  10. IRON [Concomitant]
     Route: 048
  11. VITAMINS [Concomitant]
     Route: 048

REACTIONS (10)
  - ANAEMIA [None]
  - ASPARTATE AMINOTRANSFERASE INCREASED [None]
  - BLOOD CREATINE PHOSPHOKINASE INCREASED [None]
  - CAESAREAN SECTION [None]
  - DRUG EXPOSURE DURING PREGNANCY [None]
  - ECHOENCEPHALOGRAM ABNORMAL [None]
  - HYPERLACTACIDAEMIA [None]
  - HYPOTONIA [None]
  - NEONATAL DISORDER [None]
  - NEUTROPENIA [None]
